FAERS Safety Report 8537054-7 (Version None)
Quarter: 2012Q3

REPORT INFORMATION
  Report Type: 
  Country: None (occurrence: None)
  Receive Date: 20120725
  Receipt Date: 20120720
  Transmission Date: 20120928
  Serious: Yes (Death)
  Sender: FDA-Public Use
  Company Number: HU-PFIZER INC-2012167979

PATIENT
  Age: 16 Year
  Sex: Female

DRUGS (5)
  1. CORTEF [Suspect]
     Indication: ADRENAL INSUFFICIENCY
     Dosage: 10 MG IN THE MORNING, 5 MG AT NOON, 5 MG IN THE EVENING
  2. LEVOTHYROXINE SODIUM [Concomitant]
     Dosage: 100 A?G/DIE
  3. INSULIN [Concomitant]
     Indication: DIABETES MELLITUS
     Dosage: 3 U ACTRAPID + 10 U MONOTARD IN THE MORNING, AND 2 U ACTRAPID + 4 U MONOTARD IN THE EVENING
  4. INSULIN [Concomitant]
     Dosage: 0.7 U/KG/DIE
  5. LEVOTHYROXINE SODIUM [Concomitant]
     Indication: HYPOTHYROIDISM
     Dosage: 50 UG/DIE

REACTIONS (3)
  - CARDIAC DEATH [None]
  - HYPERKALAEMIA [None]
  - NASOPHARYNGITIS [None]
